FAERS Safety Report 22149911 (Version 1)
Quarter: 2023Q1

REPORT INFORMATION
  Report Type: Other
  Country: None (occurrence: US)
  Receive Date: 20230329
  Receipt Date: 20230329
  Transmission Date: 20230417
  Serious: Yes (Other)
  Sender: FDA-Public Use
  Company Number: US-Jiangsu Hansoh Pharmaceutical Co., Ltd-2139647

PATIENT
  Age: 67 Year
  Sex: Male

DRUGS (1)
  1. BORTEZOMIB [Suspect]
     Active Substance: BORTEZOMIB

REACTIONS (1)
  - Myocarditis [Recovering/Resolving]
